FAERS Safety Report 6312254-5 (Version None)
Quarter: 2009Q3

REPORT INFORMATION
  Report Type: 
  Country: None (occurrence: None)
  Receive Date: 20090817
  Receipt Date: 20090817
  Transmission Date: 20100115
  Serious: Yes (Hospitalization)
  Sender: FDA-Public Use
  Company Number: US-ROXANE LABORATORIES, INC.-2009-RO-00833RO

PATIENT
  Sex: Female

DRUGS (2)
  1. LITHIUM CARBONATE [Suspect]
  2. LANTUS [Suspect]
     Indication: TYPE 2 DIABETES MELLITUS
     Route: 058
     Dates: start: 20090301

REACTIONS (10)
  - ABDOMINAL DISCOMFORT [None]
  - ANTIPSYCHOTIC DRUG LEVEL INCREASED [None]
  - BLOOD GLUCOSE INCREASED [None]
  - BLOOD POTASSIUM INCREASED [None]
  - CHEST PAIN [None]
  - HEADACHE [None]
  - NAUSEA [None]
  - SINUSITIS [None]
  - SPLENOMEGALY [None]
  - URINARY TRACT INFECTION [None]
